FAERS Safety Report 4751924-7 (Version None)
Quarter: 2005Q3

REPORT INFORMATION
  Report Type: 
  Country: None (occurrence: None)
  Receive Date: 20050824
  Receipt Date: 20050713
  Transmission Date: 20060218
  Serious: Yes (Hospitalization, Disabling)
  Sender: FDA-Public Use
  Company Number: US-MERCK-0507USA01908

PATIENT
  Age: 73 Year
  Sex: Female
  Weight: 115 kg

DRUGS (10)
  1. VIOXX [Suspect]
     Indication: PAIN
     Route: 048
     Dates: end: 20040930
  2. VIOXX [Suspect]
     Route: 048
     Dates: end: 20040930
  3. GLYBURIDE [Concomitant]
     Route: 065
  4. LISINOPRIL [Concomitant]
     Route: 065
  5. METOPROLOL [Concomitant]
     Route: 065
  6. ZOLOFT [Concomitant]
     Route: 065
  7. MECLIZINE [Concomitant]
     Route: 065
  8. CHERATUSSIN AC [Concomitant]
     Route: 065
  9. ASPIRIN [Concomitant]
     Route: 065
  10. NEURONTIN [Concomitant]
     Route: 065

REACTIONS (7)
  - ARTHRALGIA [None]
  - CEREBROVASCULAR ACCIDENT [None]
  - DEPRESSION [None]
  - DIZZINESS [None]
  - NECK PAIN [None]
  - SHOULDER PAIN [None]
  - THROMBOSIS [None]
